FAERS Safety Report 7235629-9 (Version None)
Quarter: 2011Q1

REPORT INFORMATION
  Report Type: 
  Country: None (occurrence: None)
  Receive Date: 20110120
  Receipt Date: 20110106
  Transmission Date: 20110831
  Serious: Yes (Other)
  Sender: FDA-Public Use
  Company Number: PHHY2011US02863

PATIENT
  Sex: Female
  Weight: 43.084 kg

DRUGS (6)
  1. KEPPRA [Concomitant]
     Dosage: 1500, ONE BID
     Dates: start: 20020301
  2. CALCIUM [Concomitant]
     Dosage: 1200 UNITS
  3. ERGOCALCIFEROL [Concomitant]
     Dosage: 50 K UNITS Q.WEEK
  4. ASPIRIN [Concomitant]
     Dosage: 325 MG, QD
  5. RECLAST [Suspect]
     Indication: OSTEOPOROSIS
     Dosage: UNK
     Dates: start: 20080724
  6. VITAMIN D [Concomitant]
     Dosage: 800 UNITS, TWICE A DAY

REACTIONS (8)
  - PULMONARY GRANULOMA [None]
  - MUSCULOSKELETAL CHEST PAIN [None]
  - LUNG DISORDER [None]
  - CHRONIC LYMPHOCYTIC LEUKAEMIA [None]
  - WHITE BLOOD CELL COUNT INCREASED [None]
  - INFLUENZA LIKE ILLNESS [None]
  - BACK PAIN [None]
  - VITAMIN D DEFICIENCY [None]
